FAERS Safety Report 10408964 (Version 1)
Quarter: 2014Q3

REPORT INFORMATION
  Report Type: Spontaneous
  Country: US (occurrence: None)
  Receive Date: 20140825
  Receipt Date: 20140825
  Transmission Date: 20150326
  Serious: Yes (Other)
  Sender: FDA-Public Use
  Company Number: None

PATIENT

DRUGS (1)
  1. CONCERTA [Suspect]
     Active Substance: METHYLPHENIDATE HYDROCHLORIDE

REACTIONS (5)
  - Hallucination, visual [None]
  - Skin odour abnormal [None]
  - Nervousness [None]
  - Social avoidant behaviour [None]
  - Dysphonia [None]

NARRATIVE: CASE EVENT DATE: 20140817
